FAERS Safety Report 15988913 (Version 1)
Quarter: 2019Q1

REPORT INFORMATION
  Report Type: Spontaneous
  Country: RU (occurrence: RU)
  Receive Date: 20190221
  Receipt Date: 20190221
  Transmission Date: 20190418
  Serious: Yes (Death)
  Sender: FDA-Public Use
  Company Number: RU-ROCHE-2243095

PATIENT
  Sex: Female

DRUGS (1)
  1. PERJETA [Suspect]
     Active Substance: PERTUZUMAB
     Indication: BREAST CANCER
     Route: 065

REACTIONS (5)
  - Metastases to lung [Fatal]
  - Metastases to liver [Fatal]
  - Metastases to bone [Fatal]
  - Motor dysfunction [Fatal]
  - Drug ineffective [Unknown]
